FAERS Safety Report 5203362-0 (Version None)
Quarter: 2007Q1

REPORT INFORMATION
  Report Type: 
  Country: None (occurrence: None)
  Receive Date: 20070110
  Receipt Date: 20070102
  Transmission Date: 20070707
  Serious: Yes (Hospitalization, Other)
  Sender: FDA-Public Use
  Company Number: US-JNJFOC-20061205001

PATIENT
  Sex: Female
  Weight: 65.32 kg

DRUGS (4)
  1. REMICADE [Suspect]
     Indication: RHEUMATOID ARTHRITIS
     Route: 042
  2. FOLIC ACID [Concomitant]
     Indication: RHEUMATOID ARTHRITIS
     Dosage: DATES OF THERAPY ^LONG TERM^
  3. ARAVA [Concomitant]
     Indication: RHEUMATOID ARTHRITIS
     Dosage: DATES OF THERAPY ^LONG TERM^
  4. PREMPRO [Concomitant]
     Indication: MENOPAUSAL SYMPTOMS
     Dosage: DOSE 0.3/1.5

REACTIONS (2)
  - LUPUS-LIKE SYNDROME [None]
  - PLEUROPERICARDITIS [None]
